FAERS Safety Report 8915488 (Version 1)
Quarter: 2012Q4

REPORT INFORMATION
  Report Type: 
  Country: DE (occurrence: DE)
  Receive Date: 20121119
  Receipt Date: 20121119
  Transmission Date: 20130627
  Serious: Yes (Other)
  Sender: FDA-Public Use
  Company Number: DE-PFIZER INC-2012284693

PATIENT
  Age: 5 Year
  Sex: Male

DRUGS (1)
  1. VORICONAZOLE [Suspect]
     Indication: ASPERGILLOSIS
     Dosage: 160 mg, 2x/day
     Route: 042
     Dates: start: 20120223, end: 20120313

REACTIONS (2)
  - Confusional state [Recovered/Resolved]
  - Restlessness [Recovered/Resolved]
